FAERS Safety Report 6436672-X (Version None)
Quarter: 2009Q4

REPORT INFORMATION
  Report Type: 
  Country: None (occurrence: None)
  Receive Date: 20091111
  Receipt Date: 20091030
  Transmission Date: 20100525
  Serious: Yes (Other)
  Sender: FDA-Public Use
  Company Number: US-PFIZER INC-2009291946

PATIENT

DRUGS (1)
  1. LINEZOLID [Suspect]
     Route: 042

REACTIONS (3)
  - GENITAL ABSCESS [None]
  - NEURODERMATITIS [None]
  - RASH [None]
